FAERS Safety Report 7332304-7 (Version None)
Quarter: 2011Q1

REPORT INFORMATION
  Report Type: 
  Country: None (occurrence: None)
  Receive Date: 20110304
  Receipt Date: 20110223
  Transmission Date: 20110831
  Serious: No
  Sender: FDA-Public Use
  Company Number: US-ROCHE-762315

PATIENT
  Sex: Male

DRUGS (2)
  1. RONDEC-DM [Concomitant]
     Dates: start: 20100131
  2. TAMIFLU [Suspect]
     Dosage: EXPIRED DRUG (MEDICATION ERROR)
     Route: 065
     Dates: start: 20110131, end: 20110131

REACTIONS (2)
  - EXPIRED DRUG ADMINISTERED [None]
  - NO ADVERSE EVENT [None]
